FAERS Safety Report 7889125-6 (Version None)
Quarter: 2011Q4

REPORT INFORMATION
  Report Type: 
  Country: None (occurrence: None)
  Receive Date: 20111103
  Receipt Date: 20111028
  Transmission Date: 20120403
  Serious: Yes (Hospitalization)
  Sender: FDA-Public Use
  Company Number: SE-TEVA-307293ISR

PATIENT
  Sex: Male

DRUGS (7)
  1. PROPAVAN (PROPIOMAZIN) [Suspect]
     Route: 048
     Dates: start: 20110801, end: 20110901
  2. NITRAZEPAM [Concomitant]
  3. FURIX RETARD [Concomitant]
  4. ASPIRIN [Concomitant]
     Route: 048
  5. CLONAZEPAM [Concomitant]
  6. OXASCAND TEVA [Suspect]
     Dosage: 25 MILLIGRAM;
     Route: 048
     Dates: start: 20110801, end: 20110901
  7. LAKTULOS ALTERNOVA [Concomitant]

REACTIONS (1)
  - CONFUSIONAL STATE [None]
